FAERS Safety Report 5536275-5 (Version None)
Quarter: 2007Q4

REPORT INFORMATION
  Report Type: 
  Country: None (occurrence: None)
  Receive Date: 20071206
  Receipt Date: 20071109
  Transmission Date: 20080405
  Serious: No
  Sender: FDA-Public Use
  Company Number: US-BOEHRINGER INGELHEIM PHARMACEUTICALS, INC.-2007-BP-24260BP

PATIENT
  Age: 53 Year
  Sex: Female

DRUGS (7)
  1. MIRAPEX [Suspect]
     Indication: PARKINSON'S DISEASE
     Route: 048
     Dates: start: 20071011
  2. TYLENOL W/ CODEINE NO. 3 [Concomitant]
  3. PROAIR (ALBUTEROL HFA) [Concomitant]
  4. DIOVAN [Concomitant]
  5. CARDIZEM [Concomitant]
  6. LANTUS [Concomitant]
  7. SEROQUEL [Concomitant]

REACTIONS (1)
  - TOOTH LOSS [None]
